FAERS Safety Report 14570394 (Version 2)
Quarter: 2018Q3

REPORT INFORMATION
  Report Type: Spontaneous
  Country: US (occurrence: US)
  Receive Date: 20180226
  Receipt Date: 20180921
  Transmission Date: 20181010
  Serious: Yes (Hospitalization)
  Sender: FDA-Public Use
  Company Number: US-IGSA-GBI005246

PATIENT
  Age: 54 Year
  Sex: Female

DRUGS (17)
  1. LOPRESSOR [Concomitant]
     Active Substance: METOPROLOL TARTRATE
     Dosage: 12.5 MG, BID
     Route: 048
     Dates: start: 20170304
  2. AZTREONAM. [Concomitant]
     Active Substance: AZTREONAM
     Dosage: 1 G, Q.8H.
     Dates: start: 20170310
  3. PHOSLO [Concomitant]
     Active Substance: CALCIUM ACETATE
     Dosage: 667 MG, TID
     Dates: start: 20170307
  4. PROCRIT [Concomitant]
     Active Substance: ERYTHROPOIETIN
     Dosage: 5000 IU, T.I.WK.
     Route: 058
     Dates: start: 20170307
  5. VANCOMYCIN [Concomitant]
     Active Substance: VANCOMYCIN
     Dosage: 1500 MG, UNK
     Route: 042
     Dates: start: 20170309
  6. ALBUTEIN [Suspect]
     Active Substance: ALBUMIN HUMAN
     Indication: HEPATORENAL SYNDROME
     Dosage: 50 G, TOTAL
     Route: 042
     Dates: start: 20170315
  7. ALBUTEIN [Suspect]
     Active Substance: ALBUMIN HUMAN
     Indication: DIALYSIS
  8. SODIUM BICARBONATE. [Concomitant]
     Active Substance: SODIUM BICARBONATE
     Dosage: 650 MG, QD
     Route: 048
     Dates: start: 20170304
  9. CELEXA [Concomitant]
     Active Substance: CITALOPRAM HYDROBROMIDE
     Dosage: 20 MG, QD
     Dates: start: 20170308
  10. PROPOFOL. [Concomitant]
     Active Substance: PROPOFOL
     Dosage: UNK
     Route: 041
     Dates: start: 20170309
  11. HUMULIN R [Concomitant]
     Active Substance: INSULIN HUMAN
     Indication: DIABETES MELLITUS
     Dosage: UNK
     Dates: start: 20170317
  12. FENTANYL. [Concomitant]
     Active Substance: FENTANYL
     Dosage: UNK
     Route: 041
     Dates: start: 20170316
  13. PROTONIX [Concomitant]
     Active Substance: PANTOPRAZOLE SODIUM
     Dosage: 40 MG, QD
     Route: 042
     Dates: start: 20170310
  14. ALBUTEIN [Suspect]
     Active Substance: ALBUMIN HUMAN
     Indication: FLUID OVERLOAD
     Dosage: 25 G, Q.12H.
     Route: 042
     Dates: start: 20170307, end: 20170316
  15. ALBUTEROL                          /00139501/ [Concomitant]
     Active Substance: ALBUTEROL
     Dosage: UNK UNK, Q.6H.
     Dates: start: 20170310
  16. CLINDAMYCIN. [Concomitant]
     Active Substance: CLINDAMYCIN
     Dosage: 600 MG, Q.8H.
     Route: 042
     Dates: start: 20170310
  17. LACTULOSE. [Concomitant]
     Active Substance: LACTULOSE
     Dosage: 20 G, BID
     Dates: start: 20170304

REACTIONS (3)
  - Rash pruritic [Recovering/Resolving]
  - Hypotension [Recovering/Resolving]
  - Tachypnoea [Recovering/Resolving]

NARRATIVE: CASE EVENT DATE: 20170316
